FAERS Safety Report 5092931-7 (Version None)
Quarter: 2006Q3

REPORT INFORMATION
  Report Type: 
  Country: None (occurrence: None)
  Receive Date: 20060830
  Receipt Date: 20060822
  Transmission Date: 20061208
  Serious: Yes (Other)
  Sender: FDA-Public Use
  Company Number: PHNU2006DE02868

PATIENT
  Age: 53 Year
  Sex: Female
  Weight: 52 kg

DRUGS (3)
  1. ZOMETA [Suspect]
     Indication: MULTIPLE MYELOMA
     Dosage: 4 MG, QMO
     Route: 042
     Dates: start: 20050301
  2. RADIOTHERAPY [Concomitant]
     Route: 065
     Dates: start: 20050101
  3. CHEMOTHERAPEUTICS,OTHER [Concomitant]
     Route: 065

REACTIONS (3)
  - DENTAL TREATMENT [None]
  - OSTEONECROSIS [None]
  - TOOTH ABSCESS [None]
